FAERS Safety Report 25196550 (Version 2)
Quarter: 2025Q4

REPORT INFORMATION
  Report Type: Spontaneous
  Country: US (occurrence: US)
  Receive Date: 20250415
  Receipt Date: 20251205
  Transmission Date: 20260118
  Serious: Yes (Death)
  Sender: TEVA
  Company Number: US-TEVA-VS-3319741

PATIENT
  Age: 85 Year
  Sex: Female

DRUGS (1)
  1. CISPLATIN [Suspect]
     Active Substance: CISPLATIN
     Indication: Vulvar adenocarcinoma
     Dosage: SIX WEEKLY CYCLES
     Route: 065

REACTIONS (1)
  - Drug ineffective [Fatal]
